FAERS Safety Report 13641484 (Version 1)
Quarter: 2017Q2

REPORT INFORMATION
  Report Type: Spontaneous
  Country: US (occurrence: US)
  Receive Date: 20170610
  Receipt Date: 20170610
  Transmission Date: 20170830
  Serious: Yes (Disabling)
  Sender: FDA-Public Use
  Company Number: None

PATIENT
  Age: 27 Year
  Sex: Female
  Weight: 52.2 kg

DRUGS (1)
  1. CIPROFLOXACIN HCL 25 MG TAB [Suspect]
     Active Substance: CIPROFLOXACIN HYDROCHLORIDE
     Indication: URINARY TRACT INFECTION
     Dosage: ?          QUANTITY:1 TABLET(S);?
     Route: 048
     Dates: start: 20170609, end: 20170609

REACTIONS (12)
  - Hyperhidrosis [None]
  - Anxiety [None]
  - Paraesthesia [None]
  - Tachycardia [None]
  - Insomnia [None]
  - Vomiting [None]
  - Hypoaesthesia [None]
  - Nervousness [None]
  - Nausea [None]
  - Dizziness [None]
  - Impaired work ability [None]
  - Diarrhoea [None]

NARRATIVE: CASE EVENT DATE: 20170610
